FAERS Safety Report 10744235 (Version 1)
Quarter: 2015Q1

REPORT INFORMATION
  Report Type: Spontaneous
  Country: US (occurrence: None)
  Receive Date: 20150126
  Receipt Date: 20150126
  Transmission Date: 20150721
  Serious: Yes (Hospitalization)
  Sender: FDA-Public Use
  Company Number: ADVERSE EVENT #529523

PATIENT
  Age: 61 Year
  Sex: Male

DRUGS (2)
  1. ACETAMINOPHEN, DEXTROMETHORPHAN, DOXYLAMINE SUCCINATE [Suspect]
     Active Substance: ACETAMINOPHEN\DEXTROMETHORPHAN HYDROBROMIDE\DOXYLAMINE SUCCINATE
     Indication: NASOPHARYNGITIS
     Dosage: AS DIRECTED/AS NEEDED
     Dates: start: 20141227, end: 20150106
  2. ACETAMINOPHEN, DEXTROMETHORPHAN, PHENYLEPHRINE [Suspect]
     Active Substance: ACETAMINOPHEN\DEXTROMETHORPHAN HYDROBROMIDE\PHENYLEPHRINE HYDROCHLORIDE
     Indication: NASOPHARYNGITIS
     Dosage: AS DIRECTED/AS NEEDED
     Dates: start: 20141227, end: 20150106

REACTIONS (1)
  - Tachycardia [None]

NARRATIVE: CASE EVENT DATE: 20150108
